FAERS Safety Report 4918369-8 (Version None)
Quarter: 2006Q1

REPORT INFORMATION
  Report Type: 
  Country: None (occurrence: None)
  Receive Date: 20060214
  Receipt Date: 20060127
  Transmission Date: 20060701
  Serious: Yes (Hospitalization)
  Sender: FDA-Public Use
  Company Number: DE200601004735

PATIENT
  Sex: Female

DRUGS (8)
  1. CYMBALTA [Suspect]
     Indication: MAJOR DEPRESSION
     Dosage: SEE IMAGE
     Route: 048
     Dates: start: 20051221, end: 20051223
  2. CYMBALTA [Suspect]
     Indication: MAJOR DEPRESSION
     Dosage: SEE IMAGE
     Route: 048
     Dates: start: 20051224, end: 20051226
  3. CYMBALTA [Suspect]
     Indication: MAJOR DEPRESSION
     Dosage: SEE IMAGE
     Route: 048
     Dates: start: 20051227, end: 20051227
  4. CYMBALTA [Suspect]
     Indication: MAJOR DEPRESSION
     Dosage: SEE IMAGE
     Route: 048
     Dates: start: 20051228, end: 20060108
  5. HALDOL [Concomitant]
  6. PROTAXIL (PROGLUMETACIN MALEATE) [Concomitant]
  7. LORAZEPAM [Concomitant]
  8. AKINETON /AUS/(BIPERIDEN HYDROCHLORIDE) [Concomitant]

REACTIONS (1)
  - HEPATIC FAILURE [None]
